FAERS Safety Report 21725742 (Version 1)
Quarter: 2022Q4

REPORT INFORMATION
  Report Type: Spontaneous
  Country: IR (occurrence: IR)
  Receive Date: 20221214
  Receipt Date: 20221214
  Transmission Date: 20230112
  Serious: Yes (Death, Hospitalization, Other)
  Sender: FDA-Public Use
  Company Number: IR-STERISCIENCE B.V.-2022-ST-000249

PATIENT
  Age: 20 Year
  Sex: Male

DRUGS (1)
  1. SUMATRIPTAN SUCCINATE [Suspect]
     Active Substance: SUMATRIPTAN SUCCINATE
     Indication: Completed suicide
     Dosage: INJECTED 30 VIALS OF SUMATRIPTAN WITH EACH VIAL STRENGTH OF 6 MG/0.5 ML
     Route: 065
     Dates: start: 2022

REACTIONS (3)
  - Pneumonia [Fatal]
  - Completed suicide [Fatal]
  - Intentional overdose [Fatal]

NARRATIVE: CASE EVENT DATE: 20220101
